FAERS Safety Report 6056359-5 (Version None)
Quarter: 2009Q1

REPORT INFORMATION
  Report Type: 
  Country: None (occurrence: None)
  Receive Date: 20090129
  Receipt Date: 20090115
  Transmission Date: 20090719
  Serious: Yes (Death, Other)
  Sender: FDA-Public Use
  Company Number: PHHO2007VE11664

PATIENT
  Sex: Male
  Weight: 66.5 kg

DRUGS (1)
  1. SANDOSTATIN LAR SAS02+VIAL [Suspect]
     Indication: NEUROENDOCRINE TUMOUR
     Dosage: 20MG, MONTHLY
     Route: 030
     Dates: start: 20070122, end: 20070625

REACTIONS (3)
  - DEATH [None]
  - HYPOGLYCAEMIA [None]
  - NEOPLASM PROGRESSION [None]
